FAERS Safety Report 9989670 (Version 1)
Quarter: 2014Q1

REPORT INFORMATION
  Report Type: Report from Study
  Country: US (occurrence: US)
  Receive Date: 20140310
  Receipt Date: 20140310
  Transmission Date: 20141002
  Serious: No
  Sender: FDA-Public Use
  Company Number: US-ABBVIE-13P-163-1133604-00

PATIENT
  Age: 45 Year
  Sex: Female
  Weight: 59.02 kg

DRUGS (5)
  1. HUMIRA [Suspect]
     Indication: PSORIATIC ARTHROPATHY
     Dates: start: 201306, end: 201307
  2. HUMIRA [Suspect]
     Indication: PSORIASIS
  3. VITAMINS [Concomitant]
     Indication: VITAMIN SUPPLEMENTATION
  4. TYLENOL [Concomitant]
     Indication: PAIN
  5. ADVIL [Concomitant]
     Indication: PAIN

REACTIONS (3)
  - Pruritus [Not Recovered/Not Resolved]
  - Blister [Not Recovered/Not Resolved]
  - Rash [Not Recovered/Not Resolved]
